FAERS Safety Report 10423370 (Version 1)
Quarter: 2014Q3

REPORT INFORMATION
  Report Type: Spontaneous
  Country: US (occurrence: None)
  Receive Date: 20140722
  Receipt Date: 20140722
  Transmission Date: 20150326
  Serious: No
  Sender: FDA-Public Use
  Company Number: AEGR000402

PATIENT
  Age: 49 Year
  Sex: Male
  Weight: 83.9 kg

DRUGS (3)
  1. JUXTAPID [Suspect]
     Active Substance: LOMITAPIDE MESYLATE
     Indication: TYPE IIA HYPERLIPIDAEMIA
     Route: 048
     Dates: start: 20140401, end: 20140418
  2. EFFEXOR (VENLAFAXINE HYDROCHLORIDE) [Concomitant]
  3. DIOVAN [Concomitant]
     Active Substance: VALSARTAN

REACTIONS (2)
  - Abdominal pain [None]
  - Rash [None]

NARRATIVE: CASE EVENT DATE: 20140418
